FAERS Safety Report 7182975-3 (Version None)
Quarter: 2010Q4

REPORT INFORMATION
  Report Type: 
  Country: None (occurrence: None)
  Receive Date: 20101222
  Receipt Date: 20101215
  Transmission Date: 20110411
  Serious: Yes (Hospitalization)
  Sender: FDA-Public Use
  Company Number: BR-US-EMD SERONO, INC.-7032193

PATIENT
  Sex: Female

DRUGS (4)
  1. REBIF [Suspect]
     Indication: RELAPSING-REMITTING MULTIPLE SCLEROSIS
     Dates: start: 20070309
  2. UNKNOWN [Concomitant]
     Indication: HEADACHE
  3. OMEPRAZOLE [Concomitant]
  4. ANTIBIOTICS [Concomitant]

REACTIONS (7)
  - CENTRAL NERVOUS SYSTEM LESION [None]
  - HEADACHE [None]
  - MULTIPLE SCLEROSIS RELAPSE [None]
  - MUSCLE SPASMS [None]
  - RENAL IMPAIRMENT [None]
  - SINUSITIS [None]
  - URINARY TRACT INFECTION [None]
